FAERS Safety Report 8293994-8 (Version None)
Quarter: 2012Q2

REPORT INFORMATION
  Report Type: 
  Country: None (occurrence: None)
  Receive Date: 20120413
  Receipt Date: 20120413
  Transmission Date: 20120825
  Serious: Yes (Other)
  Sender: FDA-Public Use
  Company Number: None

PATIENT
  Age: 53 Year
  Sex: Female
  Weight: 73.9363 kg

DRUGS (1)
  1. COPAXONE [Suspect]
     Indication: MULTIPLE SCLEROSIS
     Dosage: 20MG QD INJECTION
     Dates: start: 20120223

REACTIONS (3)
  - INJECTION SITE PRURITUS [None]
  - INJECTION SITE WARMTH [None]
  - UNEVALUABLE EVENT [None]
